FAERS Safety Report 24433701 (Version 1)
Quarter: 2024Q4

REPORT INFORMATION
  Report Type: Spontaneous
  Country: US (occurrence: US)
  Receive Date: 20241014
  Receipt Date: 20241014
  Transmission Date: 20250115
  Serious: No
  Sender: SPROUT PHARMACEUTICALS, INC.
  Company Number: US-Sprout Pharmaceuticals, Inc.-2024SP000215

PATIENT
  Age: 48 Year
  Sex: Female
  Weight: 96.248 kg

DRUGS (7)
  1. ADDYI [Suspect]
     Active Substance: FLIBANSERIN
     Indication: Libido disorder
     Dosage: RX # 8698873
     Route: 048
     Dates: start: 20240625
  2. BUPROPION [Concomitant]
     Active Substance: BUPROPION
     Indication: Depression
  3. LORATADINE [Concomitant]
     Active Substance: LORATADINE
  4. IBUPROFEN [Concomitant]
     Active Substance: IBUPROFEN
  5. DOCUSATE SODIUM [Concomitant]
     Active Substance: DOCUSATE SODIUM
  6. CAFFEINE [Concomitant]
     Active Substance: CAFFEINE
  7. EPHEDRINE [Concomitant]
     Active Substance: EPHEDRINE
     Indication: Appetite disorder

REACTIONS (1)
  - Nasal congestion [Not Recovered/Not Resolved]

NARRATIVE: CASE EVENT DATE: 20240626
